FAERS Safety Report 7477006-1 (Version None)
Quarter: 2011Q2

REPORT INFORMATION
  Report Type: 
  Country: None (occurrence: None)
  Receive Date: 20110512
  Receipt Date: 20110503
  Transmission Date: 20111010
  Serious: Yes (Hospitalization)
  Sender: FDA-Public Use
  Company Number: BR-ASTRAZENECA-2010SE35700

PATIENT
  Age: 72 Year
  Sex: Male
  Weight: 74 kg

DRUGS (3)
  1. PRESSOTEC [Concomitant]
     Indication: BLOOD PRESSURE INADEQUATELY CONTROLLED
     Route: 048
     Dates: start: 19900101
  2. CASODEX [Suspect]
     Indication: PROSTATE CANCER
     Route: 048
     Dates: start: 20100101, end: 20100611
  3. CASODEX [Suspect]
     Route: 048
     Dates: start: 20100901

REACTIONS (3)
  - PROSTATECTOMY [None]
  - PROSTATIC SPECIFIC ANTIGEN INCREASED [None]
  - PROSTATE CANCER [None]
